FAERS Safety Report 10440833 (Version 1)
Quarter: 2014Q3

REPORT INFORMATION
  Report Type: Spontaneous
  Country: US (occurrence: None)
  Receive Date: 20140908
  Receipt Date: 20140908
  Transmission Date: 20150326
  Serious: Yes (Hospitalization)
  Sender: FDA-Public Use
  Company Number: None

PATIENT
  Age: 67 Year
  Sex: Male
  Weight: 99.79 kg

DRUGS (2)
  1. CLEARLAX [Suspect]
     Active Substance: POLYETHYLENE GLYCOL 3350
     Indication: BOWEL PREPARATION
     Dosage: 14 ONCE- DAILY DOSES COLONSCOPY PREP TAKEN BY MOUTH
     Route: 048
     Dates: start: 20140904
  2. CLEARLAX [Suspect]
     Active Substance: POLYETHYLENE GLYCOL 3350
     Indication: COLONOSCOPY
     Dosage: 14 ONCE- DAILY DOSES COLONSCOPY PREP TAKEN BY MOUTH
     Route: 048
     Dates: start: 20140904

REACTIONS (9)
  - Diarrhoea [None]
  - Dizziness [None]
  - Hyperhidrosis [None]
  - Pallor [None]
  - Vomiting [None]
  - Drug hypersensitivity [None]
  - Feeling abnormal [None]
  - Mental impairment [None]
  - Abdominal pain upper [None]

NARRATIVE: CASE EVENT DATE: 20140904
